FAERS Safety Report 8341359 (Version 2)
Quarter: 2013Q2

REPORT INFORMATION
  Report Type: Spontaneous
  Country: US (occurrence: None)
  Receive Date: 20111202
  Receipt Date: 20121203
  Transmission Date: 20140414
  Serious: Yes (Other)
  Sender: FDA-Public Use
  Company Number: 2011SP046465

PATIENT
  Sex: Female

DRUGS (1)
  1. NUVARING [Suspect]
     Indication: PRODUCT USED FOR UNKNOWN INDICATION
     Dates: end: 20081013

REACTIONS (3)
  - DEEP VEIN THROMBOSIS [None]
  - Thrombophlebitis [None]
  - Off label use [None]
